FAERS Safety Report 13926177 (Version 1)
Quarter: 2017Q3

REPORT INFORMATION
  Report Type: Spontaneous
  Country: FR (occurrence: FR)
  Receive Date: 20170831
  Receipt Date: 20170831
  Transmission Date: 20171127
  Serious: Yes (Other)
  Sender: FDA-Public Use
  Company Number: FR-PFIZER INC-2017372475

PATIENT
  Age: 34 Year
  Sex: Female

DRUGS (3)
  1. ACETYLSALICYLIC ACID [Suspect]
     Active Substance: ASPIRIN
     Indication: PAIN
     Dosage: 1 DF, SINGLE
     Route: 048
     Dates: start: 1985, end: 1985
  2. ADVIL [Suspect]
     Active Substance: IBUPROFEN
     Indication: NASOPHARYNGITIS
     Dosage: 1 DF, SINGLE
     Route: 048
     Dates: start: 1998, end: 1998
  3. KETOPROFENE /00321701/ [Suspect]
     Active Substance: KETOPROFEN
     Indication: BACK PAIN
     Dosage: 1 DF, SINGLE
     Route: 030
     Dates: start: 2012, end: 2012

REACTIONS (6)
  - Wheezing [Recovered/Resolved]
  - Bronchospasm [Recovered/Resolved]
  - Rash generalised [Recovered/Resolved]
  - Cough [Recovered/Resolved]
  - Intentional product misuse [Unknown]
  - Dyspnoea [Recovered/Resolved]

NARRATIVE: CASE EVENT DATE: 1985
